FAERS Safety Report 5436727-2 (Version None)
Quarter: 2007Q3

REPORT INFORMATION
  Report Type: 
  Country: None (occurrence: None)
  Receive Date: 20070831
  Receipt Date: 20070822
  Transmission Date: 20080115
  Serious: Yes (Hospitalization)
  Sender: FDA-Public Use
  Company Number: US-JNJFOC-20060900930

PATIENT
  Sex: Female
  Weight: 52.16 kg

DRUGS (1)
  1. ORTHO EVRA [Suspect]
     Indication: DRUG USE FOR UNKNOWN INDICATION
     Route: 062

REACTIONS (7)
  - ANGINA UNSTABLE [None]
  - CEREBRAL HAEMATOMA [None]
  - CEREBRAL THROMBOSIS [None]
  - ELECTROCARDIOGRAM T WAVE INVERSION [None]
  - HYPERTENSION [None]
  - INTRACRANIAL ANEURYSM [None]
  - RUPTURED CEREBRAL ANEURYSM [None]
